FAERS Safety Report 5399039-1 (Version None)
Quarter: 2007Q3

REPORT INFORMATION
  Report Type: 
  Country: None (occurrence: None)
  Receive Date: 20070723
  Receipt Date: 20070723
  Transmission Date: 20080115
  Serious: Yes (Other)
  Sender: FDA-Public Use
  Company Number: None

PATIENT
  Sex: Male

DRUGS (1)
  1. BCG [Suspect]

REACTIONS (5)
  - BOVINE TUBERCULOSIS [None]
  - CULTURE URINE POSITIVE [None]
  - HYPERSENSITIVITY [None]
  - PATHOGEN RESISTANCE [None]
  - SEPSIS SYNDROME [None]
